FAERS Safety Report 6200921-3 (Version None)
Quarter: 2009Q2

REPORT INFORMATION
  Report Type: 
  Country: None (occurrence: None)
  Receive Date: 20090523
  Receipt Date: 20081118
  Transmission Date: 20091009
  Serious: Yes (Hospitalization)
  Sender: FDA-Public Use
  Company Number: US-ALEXION-A200800347

PATIENT
  Sex: Female

DRUGS (2)
  1. SOLIRIS [Suspect]
     Indication: PAROXYSMAL NOCTURNAL HAEMOGLOBINURIA
     Dosage: 900 MG, Q3WKS
     Route: 042
  2. WARFARIN SODIUM [Concomitant]
     Indication: ANTICOAGULANT THERAPY

REACTIONS (2)
  - CHOLECYSTITIS [None]
  - CONDITION AGGRAVATED [None]
